FAERS Safety Report 12140417 (Version 1)
Quarter: 2016Q1

REPORT INFORMATION
  Report Type: Spontaneous
  Country: FR (occurrence: FR)
  Receive Date: 20160303
  Receipt Date: 20160303
  Transmission Date: 20160526
  Serious: Yes (Other)
  Sender: FDA-Public Use
  Company Number: FR-ACORDA-ACO_121905_2016

PATIENT
  Age: 40 Year
  Sex: Male

DRUGS (4)
  1. RIVOTRIL [Suspect]
     Active Substance: CLONAZEPAM
     Dosage: 7 DROPS, ONCE DAILY
     Route: 048
  2. ZOSTRIX ORIGINAL STRENGTH [Suspect]
     Active Substance: CAPSAICIN
     Indication: NEURALGIA
     Dosage: 0.075 UNK, UNKNOWN FREQ.
     Route: 061
     Dates: start: 201601
  3. RIVOTRIL [Suspect]
     Active Substance: CLONAZEPAM
     Indication: NEURALGIA
     Dosage: 10 DROPS, ONCE DAILY
     Route: 048
  4. QUTENZA [Suspect]
     Active Substance: CAPSAICIN
     Indication: NEURALGIA
     Dosage: UNK UNK, UNKNOWN FREQ.
     Route: 061
     Dates: end: 201601

REACTIONS (2)
  - Therapeutic response increased [Recovered/Resolved with Sequelae]
  - Pain threshold decreased [Recovered/Resolved with Sequelae]

NARRATIVE: CASE EVENT DATE: 201601
